FAERS Safety Report 5397291-X (Version None)
Quarter: 2007Q3

REPORT INFORMATION
  Report Type: 
  Country: None (occurrence: None)
  Receive Date: 20070723
  Receipt Date: 20070710
  Transmission Date: 20080115
  Serious: Yes (Hospitalization)
  Sender: FDA-Public Use
  Company Number: 2007-03287

PATIENT
  Age: 79 Year
  Sex: Male
  Weight: 70 kg

DRUGS (8)
  1. TRELSTAR [Suspect]
     Indication: PROSTATE CANCER
     Dosage: 11.25 MG, SINGLE, INTRAMUSCULAR
     Route: 030
     Dates: start: 20060211, end: 20060211
  2. TRELSTAR [Suspect]
     Indication: PROSTATE CANCER
     Dosage: 11.25 MG, SINGLE, INTRAMUSCULAR
     Route: 030
     Dates: start: 20060511, end: 20060511
  3. TRELSTAR [Suspect]
     Indication: PROSTATE CANCER
     Dosage: 11.25 MG, SINGLE, INTRAMUSCULAR
     Route: 030
     Dates: start: 20060802, end: 20060802
  4. ZOXAN LP [Suspect]
     Indication: PROSTATE CANCER
     Dosage: 1 DOSE FORM, DAILY, ORAL
     Route: 048
     Dates: start: 20060701, end: 20060823
  5. DAFLON                (DIOSMIN) [Concomitant]
  6. LOPERAMIDE HCL [Concomitant]
  7. NIFUROXAZIDE                               (NIFUROXAZIDE) [Concomitant]
  8. ESBERIVEN                             (RUTOSIDE, MELILOT) [Concomitant]

REACTIONS (6)
  - ASTHENIA [None]
  - BLOOD LACTATE DEHYDROGENASE INCREASED [None]
  - DYSPNOEA [None]
  - HAEMOLYTIC ANAEMIA [None]
  - MACROCYTOSIS [None]
  - MARROW HYPERPLASIA [None]
